FAERS Safety Report 10360764 (Version 1)
Quarter: 2014Q3

REPORT INFORMATION
  Report Type: Spontaneous
  Country: IE (occurrence: IE)
  Receive Date: 20140804
  Receipt Date: 20140804
  Transmission Date: 20150326
  Serious: Yes (Other)
  Sender: FDA-Public Use
  Company Number: IE-PFIZER INC-2014211699

PATIENT
  Sex: Male

DRUGS (1)
  1. INLYTA [Suspect]
     Active Substance: AXITINIB
     Indication: METASTATIC RENAL CELL CARCINOMA
     Dosage: 7 MG, UNK

REACTIONS (4)
  - Metastatic renal cell carcinoma [Unknown]
  - Pancreatic enlargement [Unknown]
  - Disease progression [Unknown]
  - Bile duct obstruction [Unknown]
